FAERS Safety Report 7444950-0 (Version None)
Quarter: 2011Q2

REPORT INFORMATION
  Report Type: 
  Country: None (occurrence: None)
  Receive Date: 20110429
  Receipt Date: 20110420
  Transmission Date: 20111010
  Serious: Yes (Hospitalization)
  Sender: FDA-Public Use
  Company Number: PHHO2011US06306

PATIENT
  Sex: Female
  Weight: 56.8 kg

DRUGS (6)
  1. VICODIN [Concomitant]
  2. BLINDED NO TREATMENT RECEIVED [Suspect]
     Indication: DEMENTIA ALZHEIMER'S TYPE
     Dosage: DOUBLE BLIND
     Route: 062
     Dates: start: 20100113
  3. EXELON [Suspect]
     Indication: DEMENTIA ALZHEIMER'S TYPE
     Dosage: DOUBLE BLIND
     Route: 062
     Dates: start: 20100113
  4. XANAX [Concomitant]
     Indication: ANXIETY
  5. COLACE [Concomitant]
  6. EXELON [Suspect]
     Indication: DEMENTIA ALZHEIMER'S TYPE
     Dosage: DOUBLE BLIND
     Route: 062
     Dates: start: 20100113

REACTIONS (1)
  - DEMENTIA ALZHEIMER'S TYPE [None]
